FAERS Safety Report 18383881 (Version 2)
Quarter: 2021Q1

REPORT INFORMATION
  Report Type: Spontaneous
  Country: JP (occurrence: JP)
  Receive Date: 20201014
  Receipt Date: 20210317
  Transmission Date: 20210419
  Serious: Yes (Other)
  Sender: FDA-Public Use
  Company Number: JP-SA-2020SA286582

PATIENT
  Age: 74 Year
  Sex: Male

DRUGS (19)
  1. SODIUM RABEPRAZOLE [Concomitant]
     Active Substance: RABEPRAZOLE SODIUM
     Dosage: UNK
  2. OXYCODONE [Concomitant]
     Active Substance: OXYCODONE
     Dosage: UNK
  3. STROCAIN [OXETACAINE] [Concomitant]
  4. MYSLEE [Suspect]
     Active Substance: ZOLPIDEM TARTRATE
     Indication: INSOMNIA
     Dosage: 5 MG, HS
     Route: 048
     Dates: start: 20200910, end: 20200910
  5. PURSENNIDE [SENNOSIDE A+B] [Concomitant]
     Active Substance: SENNOSIDES A AND B
     Route: 065
  6. NAIXAN [NAPROXEN] [Concomitant]
     Active Substance: NAPROXEN
     Dosage: UNK
     Route: 065
     Dates: start: 20200321, end: 20200918
  7. METHYCOBAL [Concomitant]
     Active Substance: METHYLCOBALAMIN
     Dosage: 0.5 MG
     Route: 048
  8. DECADRON [Concomitant]
     Active Substance: DEXAMETHASONE
     Dosage: UNK
  9. OXINORM [OXYCODONE HYDROCHLORIDE] [Concomitant]
     Active Substance: OXYCODONE HYDROCHLORIDE
     Dosage: UNK
  10. MOXINORM [Concomitant]
  11. MECOBALAMIN [Concomitant]
     Active Substance: METHYLCOBALAMIN
  12. MEPENZOLATE BROMIDE [Interacting]
     Active Substance: MEPENZOLATE BROMIDE
     Indication: ABDOMINAL DISTENSION
     Dosage: 7.5 MG, Q8H
     Route: 048
     Dates: end: 20200918
  13. FEBURIC [Concomitant]
     Active Substance: FEBUXOSTAT
     Dosage: UNK
  14. OXYCONTIN [Concomitant]
     Active Substance: OXYCODONE HYDROCHLORIDE
  15. NAUZELIN [Concomitant]
     Active Substance: DOMPERIDONE
     Dosage: UNK
     Route: 065
     Dates: start: 20200829, end: 20200918
  16. LOXONIN [Concomitant]
     Active Substance: LOXOPROFEN SODIUM
     Dosage: UNK
  17. AMENALIEF [Concomitant]
     Active Substance: AMENAMEVIR
     Dosage: UNK
     Dates: start: 20200905, end: 20200911
  18. QUETIAPINE FUMARATE. [Interacting]
     Active Substance: QUETIAPINE FUMARATE
     Indication: RESTLESSNESS
     Dosage: 25 MG, Q12H
     Route: 048
     Dates: start: 20200910, end: 20200918
  19. PURSENNIDE [SENNA ALEXANDRINA LEAF] [Concomitant]

REACTIONS (2)
  - Drug interaction [Unknown]
  - Urinary retention [Unknown]

NARRATIVE: CASE EVENT DATE: 20200918
